FAERS Safety Report 19721049 (Version 2)
Quarter: 2021Q3

REPORT INFORMATION
  Report Type: Report from Study
  Country: MA (occurrence: MA)
  Receive Date: 20210819
  Receipt Date: 20210831
  Transmission Date: 20211014
  Serious: Yes (Hospitalization)
  Sender: FDA-Public Use
  Company Number: MA-EMD SERONO-9258321

PATIENT
  Age: 37 Year
  Sex: Male

DRUGS (2)
  1. REBIF [Suspect]
     Active Substance: INTERFERON BETA-1A
     Indication: PRODUCT USED FOR UNKNOWN INDICATION
     Dates: start: 20180920, end: 20210811
  2. REBIF [Suspect]
     Active Substance: INTERFERON BETA-1A
     Dates: start: 20210820

REACTIONS (3)
  - Limb discomfort [Unknown]
  - Disease recurrence [Unknown]
  - Fatigue [Unknown]

NARRATIVE: CASE EVENT DATE: 20210801
